FAERS Safety Report 11312015 (Version 1)
Quarter: 2015Q3

REPORT INFORMATION
  Report Type: Spontaneous
  Country: US (occurrence: None)
  Receive Date: 20150723
  Receipt Date: 20150723
  Transmission Date: 20151125
  Serious: Yes (Other)
  Sender: FDA-Public Use
  Company Number: HA15-191-AE

PATIENT
  Age: 61 Year
  Sex: Female
  Weight: 65.32 kg

DRUGS (1)
  1. TRAMADOL HCL [Suspect]
     Active Substance: TRAMADOL HYDROCHLORIDE
     Indication: SCIATICA
     Route: 048
     Dates: start: 20150509, end: 20150510

REACTIONS (7)
  - Hypersensitivity [None]
  - Dysphagia [None]
  - Rash [None]
  - Angioedema [None]
  - Apparent life threatening event [None]
  - Pulmonary pain [None]
  - Dyspnoea [None]

NARRATIVE: CASE EVENT DATE: 20150510
